FAERS Safety Report 8765636 (Version 2)
Quarter: 2012Q4

REPORT INFORMATION
  Report Type: 
  Country: US (occurrence: US)
  Receive Date: 20120903
  Receipt Date: 20121018
  Transmission Date: 20130627
  Serious: No
  Sender: FDA-Public Use
  Company Number: PHEH2012US017156

PATIENT
  Sex: Male
  Weight: 87.98 kg

DRUGS (2)
  1. TASIGNA [Suspect]
     Dosage: 300 mg, BID
     Route: 048
  2. SPRYCEL [Concomitant]

REACTIONS (1)
  - Drug ineffective [Unknown]
